FAERS Safety Report 9473292 (Version 2)
Quarter: 2014Q3

REPORT INFORMATION
  Report Type: Spontaneous
  Country: US (occurrence: US)
  Receive Date: 20130823
  Receipt Date: 20140808
  Transmission Date: 20150326
  Serious: Yes (Other)
  Sender: FDA-Public Use
  Company Number: US-BRISTOL-MYERS SQUIBB COMPANY-18856310

PATIENT
  Age: 58 Year
  Sex: Female
  Weight: 73.92 kg

DRUGS (14)
  1. LEVAQUIN [Concomitant]
     Active Substance: LEVOFLOXACIN
  2. TYLENOL [Concomitant]
     Active Substance: ACETAMINOPHEN
  3. IMODIUM [Concomitant]
     Active Substance: LOPERAMIDE HYDROCHLORIDE
  4. FAMVIR [Concomitant]
     Active Substance: FAMCICLOVIR
  5. HYDROCODONE [Concomitant]
     Active Substance: HYDROCODONE
     Dosage: SYRUP
  6. MULTIVITAMIN [Concomitant]
     Active Substance: VITAMINS
  7. VITAMIN D [Concomitant]
     Active Substance: CHOLECALCIFEROL
  8. ESTRADIOL. [Interacting]
     Active Substance: ESTRADIOL
     Indication: HOT FLUSH
     Route: 048
  9. CALCIUM [Concomitant]
     Active Substance: CALCIUM
  10. GLUCOSAMINE [Concomitant]
     Active Substance: GLUCOSAMINE
  11. SPRYCEL [Suspect]
     Active Substance: DASATINIB
     Indication: CHRONIC MYELOID LEUKAEMIA
     Dosage: STRENGTH IS 80MG?SINCE APRIL FROM 100 MG TO 80 MG NOW TO 20 MG QD?40 MG?TABS
     Route: 048
     Dates: start: 20130329
  12. VITAMIN C [Concomitant]
     Active Substance: ASCORBIC ACID
  13. ASPIRIN. [Concomitant]
     Active Substance: ASPIRIN
  14. COUMADIN [Concomitant]
     Active Substance: WARFARIN SODIUM

REACTIONS (27)
  - Headache [Recovering/Resolving]
  - Fatigue [Unknown]
  - Nasopharyngitis [Unknown]
  - Bronchitis [Recovered/Resolved]
  - Weight decreased [Unknown]
  - Cough [Unknown]
  - Muscular weakness [Recovered/Resolved]
  - Thirst [Unknown]
  - Migraine [Unknown]
  - Upper respiratory tract infection [Unknown]
  - Stomatitis [Unknown]
  - Venous thrombosis limb [Unknown]
  - Dry mouth [Unknown]
  - Nausea [Unknown]
  - Gingival swelling [Unknown]
  - Hyperhidrosis [Unknown]
  - Pain in extremity [Unknown]
  - Parosmia [Not Recovered/Not Resolved]
  - Diarrhoea [Unknown]
  - Neuropathy peripheral [Unknown]
  - Dysgeusia [Unknown]
  - Fluid retention [Unknown]
  - Vomiting [Unknown]
  - Acne [Unknown]
  - Alopecia [Unknown]
  - Rash [Unknown]
  - Drug interaction [Unknown]

NARRATIVE: CASE EVENT DATE: 20130329
